FAERS Safety Report 25111663 (Version 1)
Quarter: 2025Q1

REPORT INFORMATION
  Report Type: Spontaneous
  Country: CN (occurrence: CN)
  Receive Date: 20250324
  Receipt Date: 20250324
  Transmission Date: 20250409
  Serious: Yes (Other)
  Sender: BAXTER
  Company Number: None

PATIENT
  Age: 35 Year
  Sex: Male
  Weight: 101 kg

DRUGS (5)
  1. CLINOMEL [Suspect]
     Active Substance: AMINO ACIDS\DEXTROSE\ELECTROLYTES NOS\SOYBEAN OIL
     Indication: Symptomatic treatment
     Route: 041
     Dates: start: 20250115, end: 20250116
  2. POTASSIUM PHOSPHATE, DIBASIC\POTASSIUM PHOSPHATE, MONOBASIC [Suspect]
     Active Substance: POTASSIUM PHOSPHATE, DIBASIC\POTASSIUM PHOSPHATE, MONOBASIC
     Indication: Symptomatic treatment
     Route: 041
     Dates: start: 20250115, end: 20250116
  3. INSULIN NOS [Suspect]
     Active Substance: INSULIN NOS
     Indication: Drug therapy
     Route: 041
     Dates: start: 20250115, end: 20250116
  4. POTASSIUM CHLORIDE [Suspect]
     Active Substance: POTASSIUM CHLORIDE
     Indication: Symptomatic treatment
     Route: 041
     Dates: start: 20250115, end: 20250116
  5. VITAMIN C [Suspect]
     Active Substance: ASCORBIC ACID
     Indication: Symptomatic treatment
     Route: 041
     Dates: start: 20250115, end: 20250116

REACTIONS (3)
  - Anaphylactoid reaction [Recovered/Resolved]
  - Pruritus [Recovered/Resolved]
  - Papule [Recovered/Resolved]

NARRATIVE: CASE EVENT DATE: 20250116
